FAERS Safety Report 7650025-8 (Version None)
Quarter: 2011Q3

REPORT INFORMATION
  Report Type: 
  Country: None (occurrence: None)
  Receive Date: 20110727
  Receipt Date: 20110711
  Transmission Date: 20111222
  Serious: Yes (Other)
  Sender: FDA-Public Use
  Company Number: 2011002243

PATIENT
  Age: 57 Year
  Sex: Male

DRUGS (2)
  1. TARCEVA [Suspect]
     Indication: LUNG NEOPLASM MALIGNANT
     Dosage: WILL START WHEN MEDICATION IS RECEIVED, ORAL ; 150 MG, QD, ORAL
     Route: 048
     Dates: start: 20110101
  2. TARCEVA [Suspect]
     Indication: LUNG NEOPLASM MALIGNANT
     Dosage: WILL START WHEN MEDICATION IS RECEIVED, ORAL ; 150 MG, QD, ORAL
     Route: 048
     Dates: start: 20110419, end: 20110101

REACTIONS (3)
  - NASAL NECROSIS [None]
  - RASH [None]
  - EPISTAXIS [None]
